FAERS Safety Report 13558184 (Version 1)
Quarter: 2017Q2

REPORT INFORMATION
  Report Type: Spontaneous
  Country: US (occurrence: US)
  Receive Date: 20170517
  Receipt Date: 20170517
  Transmission Date: 20170830
  Serious: Yes (Hospitalization)
  Sender: FDA-Public Use
  Company Number: None

PATIENT
  Age: 70 Year
  Sex: Male

DRUGS (1)
  1. THALOMID [Suspect]
     Active Substance: THALIDOMIDE
     Indication: GASTROINTESTINAL MALFORMATION
     Route: 048
     Dates: start: 20131217

REACTIONS (3)
  - Procedural complication [None]
  - Gastrointestinal haemorrhage [None]
  - Anaemia [None]

NARRATIVE: CASE EVENT DATE: 20170515
